FAERS Safety Report 4811373-X (Version None)
Quarter: 2005Q4

REPORT INFORMATION
  Report Type: 
  Country: None (occurrence: None)
  Receive Date: 20051027
  Receipt Date: 20050527
  Transmission Date: 20060501
  Serious: Yes (Death, Hospitalization)
  Sender: FDA-Public Use
  Company Number: PHFR2005GB01929

PATIENT
  Age: 76 Year
  Sex: Male
  Weight: 85 kg

DRUGS (6)
  1. DICLOFENAC [Suspect]
     Indication: BACK PAIN
     Dosage: 50 MG, TID
     Route: 048
     Dates: start: 20050308
  2. ACETYLSALICYLIC ACID SRT [Suspect]
     Indication: PROPHYLAXIS
     Dosage: 75 MG, QD
     Route: 048
     Dates: start: 20040527
  3. CO-TENIDONE [Concomitant]
     Indication: ANGINA PECTORIS
     Dosage: 100/25 QD
     Route: 048
     Dates: start: 19970101
  4. SIMVASTATIN [Concomitant]
     Indication: PROPHYLAXIS
     Dosage: 40 MG, QD
     Route: 048
     Dates: start: 20040527
  5. RAMIPRIL [Concomitant]
     Indication: BLOOD PRESSURE INCREASED
     Dosage: 10 MG, QD
     Route: 048
     Dates: start: 20041208
  6. GTN-S [Suspect]
     Dosage: 400UG DAILY
     Route: 065

REACTIONS (5)
  - ABDOMINAL PAIN [None]
  - CIRCULATORY COLLAPSE [None]
  - GASTROINTESTINAL HAEMORRHAGE [None]
  - PROSTATE CANCER [None]
  - URINARY RETENTION [None]
